FAERS Safety Report 20419522 (Version 1)
Quarter: 2022Q1

REPORT INFORMATION
  Report Type: Spontaneous
  Country: US (occurrence: US)
  Receive Date: 20220203
  Receipt Date: 20220203
  Transmission Date: 20220423
  Serious: Yes (Other)
  Sender: FDA-Public Use
  Company Number: US-ROCHE-3000320

PATIENT
  Sex: Female

DRUGS (2)
  1. CLONAZEPAM [Suspect]
     Active Substance: CLONAZEPAM
     Indication: Product used for unknown indication
     Dosage: 1 MG
     Route: 065
  2. ACTEMRA [Suspect]
     Active Substance: TOCILIZUMAB
     Indication: Rheumatoid arthritis
     Dosage: 400 MG, EVERY 28 DAYS
     Route: 042

REACTIONS (9)
  - Osteoporosis [Unknown]
  - Vulvar dysplasia [Unknown]
  - Age-related macular degeneration [Unknown]
  - Intraocular lens implant [Unknown]
  - Dry eye [Unknown]
  - Diastolic dysfunction [Unknown]
  - Palpitations [Unknown]
  - Chronic sinusitis [Unknown]
  - Chronic kidney disease [Unknown]
